FAERS Safety Report 4751498-0 (Version None)
Quarter: 2005Q3

REPORT INFORMATION
  Report Type: 
  Country: None (occurrence: None)
  Receive Date: 20050824
  Receipt Date: 20050328
  Transmission Date: 20060218
  Serious: Yes (Hospitalization)
  Sender: FDA-Public Use
  Company Number: US-MERCK-0503USA05019

PATIENT
  Age: 58 Year
  Sex: Female
  Weight: 82 kg

DRUGS (7)
  1. VIOXX [Suspect]
     Indication: ARTHRITIS
     Route: 048
     Dates: start: 19991201, end: 20030701
  2. PRAVACHOL [Concomitant]
     Route: 065
  3. PREMPRO [Concomitant]
     Route: 065
     Dates: start: 20000101, end: 20030101
  4. PAXIL [Concomitant]
     Route: 065
  5. IMDUR [Concomitant]
     Route: 065
  6. NORVASC [Concomitant]
     Route: 065
  7. LOPRESSOR [Concomitant]
     Route: 065

REACTIONS (12)
  - ACUTE CORONARY SYNDROME [None]
  - ANGINA PECTORIS [None]
  - ANGINA UNSTABLE [None]
  - BACK PAIN [None]
  - BLOOD CHOLESTEROL INCREASED [None]
  - DEPRESSION [None]
  - FLUID RETENTION [None]
  - GASTROINTESTINAL HAEMORRHAGE [None]
  - HYPERTENSION [None]
  - MYOCARDIAL INFARCTION [None]
  - OEDEMA [None]
  - SLEEP APNOEA SYNDROME [None]
